FAERS Safety Report 5100173-1 (Version None)
Quarter: 2006Q3

REPORT INFORMATION
  Report Type: 
  Country: None (occurrence: None)
  Receive Date: 20060728
  Receipt Date: 20060508
  Transmission Date: 20061208
  Serious: Yes (Hospitalization)
  Sender: FDA-Public Use
  Company Number: 200610166

PATIENT
  Age: 23 Year
  Sex: Female

DRUGS (27)
  1. CARIMUNE [Suspect]
     Indication: SYSTEMIC LUPUS ERYTHEMATOSUS
     Dosage: SEE IMAGE
     Route: 042
     Dates: start: 20060504, end: 20060506
  2. CARIMUNE [Suspect]
     Indication: THROMBOCYTOPENIA
     Dosage: SEE IMAGE
     Route: 042
     Dates: start: 20060504, end: 20060506
  3. CARIMUNE [Suspect]
  4. CALCIUM CARBONATE [Concomitant]
  5. ESOMEPRAZOLE MAGNESIUM [Concomitant]
  6. ASPIRIN [Concomitant]
  7. HYDROCHLOROTHIAZIDE [Concomitant]
  8. CETIRIZINE HCL [Concomitant]
  9. VALACYCLOVIR HCL [Concomitant]
  10. CYANOCOBALAMINE [Concomitant]
  11. EPOETIN ALFA [Concomitant]
  12. FERROUS SULFATE TAB [Concomitant]
  13. DOCUSATE [Concomitant]
  14. TRAZODONE HCL [Concomitant]
  15. CYCLOBENZAPRINE [Concomitant]
  16. ZOLPIDEM TARTRATE [Concomitant]
  17. METHYLPREDNISOLONE 4MG TAB [Concomitant]
  18. DULOXETINE [Concomitant]
  19. ATROPIUM [Concomitant]
  20. UTEROL [Concomitant]
  21. HEPARIN [Concomitant]
  22. ACETAMINOPHEN [Concomitant]
  23. PROMETHAZINE [Concomitant]
  24. HEMORRHOIDAL /00116302/ [Concomitant]
  25. OXYCODONE HCL [Concomitant]
  26. HEMORRHOIDAL HC /01701601 [Concomitant]
  27. GUAIFENESIN W/DEXTROMETHORPHAN [Concomitant]

REACTIONS (2)
  - HYPONATRAEMIA [None]
  - RENAL FAILURE [None]
